FAERS Safety Report 9337695 (Version 1)
Quarter: 2013Q2

REPORT INFORMATION
  Report Type: Spontaneous
  Country: BR (occurrence: BR)
  Receive Date: 20130607
  Receipt Date: 20130607
  Transmission Date: 20140414
  Serious: Yes (Hospitalization)
  Sender: FDA-Public Use
  Company Number: BR-ASTRAZENECA-2013SE39924

PATIENT
  Age: 401 Month
  Sex: Male
  Weight: 96 kg

DRUGS (4)
  1. ATENOL [Suspect]
     Indication: HYPERTENSION
     Route: 065
     Dates: start: 2012
  2. CRESTOR [Suspect]
     Indication: BLOOD CHOLESTEROL INCREASED
     Route: 048
     Dates: start: 2012
  3. BRILINTA [Suspect]
     Indication: CORONARY ARTERY OCCLUSION
     Route: 048
     Dates: start: 201305
  4. GLIFAGE XR [Concomitant]
     Indication: GLUCOSE TOLERANCE IMPAIRED
     Dosage: DAILY

REACTIONS (5)
  - Coronary artery occlusion [Recovered/Resolved]
  - Headache [Not Recovered/Not Resolved]
  - Nausea [Not Recovered/Not Resolved]
  - Dizziness [Not Recovered/Not Resolved]
  - Off label use [Not Recovered/Not Resolved]
